FAERS Safety Report 8927228 (Version 1)
Quarter: 2012Q4

REPORT INFORMATION
  Report Type: 
  Country: SE (occurrence: SE)
  Receive Date: 20121127
  Receipt Date: 20121127
  Transmission Date: 20130627
  Serious: Yes (Other)
  Sender: FDA-Public Use
  Company Number: SE-JNJFOC-20121112041

PATIENT
  Age: 64 Year
  Sex: Male

DRUGS (1)
  1. NICORETTE [Suspect]
     Indication: SMOKING CESSATION THERAPY
     Route: 065
     Dates: start: 2007

REACTIONS (2)
  - Nicotine dependence [Unknown]
  - Intentional drug misuse [Unknown]
